FAERS Safety Report 5189403-8 (Version None)
Quarter: 2006Q4

REPORT INFORMATION
  Report Type: 
  Country: None (occurrence: None)
  Receive Date: 20061215
  Receipt Date: 20061129
  Transmission Date: 20070319
  Serious: Yes (Disabling)
  Sender: FDA-Public Use
  Company Number: 2006001986

PATIENT
  Age: 55 Year
  Sex: Female

DRUGS (1)
  1. TARCEVA [Suspect]
     Dosage: ORAL
     Route: 048
     Dates: start: 20060915

REACTIONS (6)
  - DEMYELINATION [None]
  - DIARRHOEA [None]
  - DIPLOPIA [None]
  - OPTIC NERVE DISORDER [None]
  - RASH [None]
  - VISUAL ACUITY REDUCED [None]
